FAERS Safety Report 10727771 (Version 2)
Quarter: 2015Q1

REPORT INFORMATION
  Report Type: Spontaneous
  Country: DE (occurrence: DE)
  Receive Date: 20150121
  Receipt Date: 20150130
  Transmission Date: 20150721
  Serious: Yes (Disabling, Other)
  Sender: FDA-Public Use
  Company Number: DE-GLAXOSMITHKLINE-DE2015GSK006318

PATIENT
  Age: 56 Year
  Sex: Female
  Weight: 96 kg

DRUGS (8)
  1. VALSARTAN AND HYDROCHLOROTHIAZIDE [Concomitant]
     Active Substance: HYDROCHLOROTHIAZIDE\VALSARTAN
     Indication: HYPERTENSION
     Dosage: 345 MG, QD
     Route: 048
  2. JODETTEN [Concomitant]
     Dosage: 1 DF (TABLET), QD
     Route: 048
  3. VIGANTOLETTEN [Concomitant]
     Active Substance: CHOLECALCIFEROL
     Dosage: 1000 MG, QD
     Route: 048
  4. PREDNISOLON [Concomitant]
     Active Substance: PREDNISOLONE
     Indication: SYSTEMIC LUPUS ERYTHEMATOSUS
     Dosage: 5 MG, QD
     Route: 048
  5. L -THYROXINE [Concomitant]
     Dosage: 175 UG, QD
     Route: 048
  6. BENLYSTA [Suspect]
     Active Substance: BELIMUMAB
     Indication: SYSTEMIC LUPUS ERYTHEMATOSUS
     Dosage: 960 MG, CYC
     Route: 042
     Dates: start: 20140225, end: 20150106
  7. QUENSYL [Concomitant]
     Active Substance: HYDROXYCHLOROQUINE
     Indication: SYSTEMIC LUPUS ERYTHEMATOSUS
     Dosage: 400 MG, QD
     Route: 048
  8. METOPROLOL [Concomitant]
     Active Substance: METOPROLOL
     Indication: HYPERTENSION
     Dosage: 50 MG, QD
     Route: 048

REACTIONS (2)
  - Borderline mucinous tumour of ovary [Recovered/Resolved with Sequelae]
  - Genital neoplasm malignant female [Recovered/Resolved with Sequelae]

NARRATIVE: CASE EVENT DATE: 20150107
